FAERS Safety Report 21544633 (Version 1)
Quarter: 2022Q4

REPORT INFORMATION
  Report Type: Spontaneous
  Country: US (occurrence: None)
  Receive Date: 20221101
  Receipt Date: 20221101
  Transmission Date: 20230113
  Serious: Yes (Disabling)
  Sender: FDA-Public Use
  Company Number: None

PATIENT
  Age: 72 Year
  Sex: Female
  Weight: 77.85 kg

DRUGS (8)
  1. LEVOFLOXACIN [Suspect]
     Active Substance: LEVOFLOXACIN
     Indication: Bronchitis
     Dosage: OTHER QUANTITY : 1 TABLET(S);?
     Route: 048
  2. NORVASC [Concomitant]
     Active Substance: AMLODIPINE BESYLATE
  3. COSOPT PF [Concomitant]
     Active Substance: DORZOLAMIDE HYDROCHLORIDE\TIMOLOL MALEATE
  4. LATANOPROST [Concomitant]
     Active Substance: LATANOPROST
  5. FLONASE [Concomitant]
     Active Substance: FLUTICASONE PROPIONATE
  6. INCRUSE ELLIPTA [Concomitant]
     Active Substance: UMECLIDINIUM BROMIDE
  7. Liquid multivitamin and mineral supplement [Concomitant]
  8. MELATONIN [Concomitant]
     Active Substance: MELATONIN

REACTIONS (5)
  - Groin pain [None]
  - Mobility decreased [None]
  - Gait disturbance [None]
  - Poor quality sleep [None]
  - Dysstasia [None]

NARRATIVE: CASE EVENT DATE: 20210912
